FAERS Safety Report 11068841 (Version 1)
Quarter: 2015Q2

REPORT INFORMATION
  Report Type: Report from Study
  Country: US (occurrence: US)
  Receive Date: 20150427
  Receipt Date: 20150427
  Transmission Date: 20150821
  Serious: Yes (Hospitalization)
  Sender: FDA-Public Use
  Company Number: US-BIOGENIDEC-2015BI052246

PATIENT
  Age: 63 Year
  Sex: Male

DRUGS (1)
  1. AVONEX [Suspect]
     Active Substance: INTERFERON BETA-1A
     Indication: MULTIPLE SCLEROSIS
     Route: 030

REACTIONS (6)
  - Blood potassium increased [Recovered/Resolved]
  - Arterial occlusive disease [Unknown]
  - Cardiac arrest [Recovered/Resolved]
  - Nephropathy toxic [Not Recovered/Not Resolved]
  - Respiratory disorder [Unknown]
  - Fall [Recovered/Resolved]

NARRATIVE: CASE EVENT DATE: 201502
